FAERS Safety Report 9843945 (Version 1)
Quarter: 2013Q4

REPORT INFORMATION
  Report Type: Spontaneous
  Country: US (occurrence: None)
  Receive Date: 20131223
  Receipt Date: 20131223
  Transmission Date: 20140711
  Serious: No
  Sender: FDA-Public Use
  Company Number: 1000049489

PATIENT
  Age: 25 Year
  Sex: Female

DRUGS (1)
  1. LINZESS (LINACLOTIDE) (145 MICROGRAM, CAPSULES) [Suspect]
     Indication: CONSTIPATION
     Dosage: 145 MCG (145 MCG, 1 IN 1 D), ORAL

REACTIONS (4)
  - Dyspnoea [None]
  - Pruritus [None]
  - Dizziness [None]
  - Abdominal pain [None]
